FAERS Safety Report 6223511-5 (Version None)
Quarter: 2009Q2

REPORT INFORMATION
  Report Type: 
  Country: None (occurrence: None)
  Receive Date: 20090610
  Receipt Date: 20090526
  Transmission Date: 20091009
  Serious: Yes (Hospitalization)
  Sender: FDA-Public Use
  Company Number: 2009001599

PATIENT
  Age: 53 Year
  Sex: Male
  Weight: 87.7 kg

DRUGS (5)
  1. ERLOTINIB             (ERLOTINIB) [Suspect]
     Dosage: (100 MG, QD), ORAL
     Route: 048
     Dates: start: 20090323
  2. TAXOTERE [Suspect]
     Indication: HEAD AND NECK CANCER
     Dosage: (20 MG/M2, WEEKLY), INTRAVENOUS
     Route: 042
     Dates: start: 20090406
  3. MINOCYCLINE HCL [Concomitant]
  4. FENTANYL [Concomitant]
  5. OXYCODONE HCL [Concomitant]

REACTIONS (6)
  - BLOOD GLUCOSE INCREASED [None]
  - HERPES ZOSTER [None]
  - NAUSEA [None]
  - ODYNOPHAGIA [None]
  - OROPHARYNGEAL CANDIDIASIS [None]
  - VOMITING [None]
